FAERS Safety Report 10617307 (Version 3)
Quarter: 2014Q4

REPORT INFORMATION
  Report Type: Spontaneous
  Country: BR (occurrence: BR)
  Receive Date: 20141201
  Receipt Date: 20141209
  Transmission Date: 20150529
  Serious: Yes (Other)
  Sender: FDA-Public Use
  Company Number: BR-SA-2014SA075933

PATIENT
  Age: 39 Year
  Sex: Female
  Weight: 57.5 kg

DRUGS (4)
  1. MATERNA [Concomitant]
     Indication: VITAMIN SUPPLEMENTATION
     Dosage: IN MORNING
     Route: 048
     Dates: start: 20140130
  2. VITAMIN B12 NOS/ERGOCALCIFEROL/GASTRIC MUCOSA EXTRACT/SODIUM FLUORIDE/CALCIUM PHOSPHATE [Concomitant]
     Indication: MINERAL SUPPLEMENTATION
     Dosage: IN MORNING
     Route: 048
     Dates: start: 20140130
  3. CLEXANE [Suspect]
     Active Substance: ENOXAPARIN SODIUM
     Indication: THROMBOSIS PROPHYLAXIS
     Dosage: DOSE: ONCE A DAY AT NIGHT
     Route: 058
     Dates: start: 20140130
  4. ASCORBIC ACID/TOCOPHEROL/VITAMIN D NOS [Concomitant]
     Indication: PREGNANCY
     Dosage: DOSE 1 G VITAMIN CAND 400 MG VITAMIN E
     Route: 048
     Dates: start: 20140130

REACTIONS (2)
  - Exposure during pregnancy [Unknown]
  - Abnormal labour [Unknown]

NARRATIVE: CASE EVENT DATE: 20140130
